FAERS Safety Report 10264869 (Version 1)
Quarter: 2014Q2

REPORT INFORMATION
  Report Type: Spontaneous
  Country: US (occurrence: None)
  Receive Date: 20140625
  Receipt Date: 20140625
  Transmission Date: 20141212
  Serious: No
  Sender: FDA-Public Use
  Company Number: None

PATIENT
  Age: 48 Year
  Sex: Female
  Weight: 53.52 kg

DRUGS (1)
  1. ATORVASTATIN 20MG [Suspect]
     Indication: HYPERLIPIDAEMIA
     Dosage: 20MG, TQD, ORAL
     Route: 048
     Dates: start: 201208, end: 20131223

REACTIONS (7)
  - Back pain [None]
  - Eructation [None]
  - Abdominal pain lower [None]
  - Gastrooesophageal reflux disease [None]
  - Diarrhoea [None]
  - Constipation [None]
  - Product substitution issue [None]
